FAERS Safety Report 9017622 (Version 1)
Quarter: 2013Q1

REPORT INFORMATION
  Report Type: Spontaneous
  Country: DE (occurrence: DE)
  Receive Date: 20130117
  Receipt Date: 20130117
  Transmission Date: 20140127
  Serious: Yes (Other)
  Sender: FDA-Public Use
  Company Number: DE-B.I. PHARMACEUTICALS,INC./RIDGEFIELD-2013-DE-00090DE

PATIENT
  Age: 80 Year
  Sex: Male

DRUGS (2)
  1. PRADAXA [Suspect]
     Indication: ATRIAL FIBRILLATION
     Dosage: 110 MG
     Dates: end: 20130111
  2. DRONEDARON [Concomitant]

REACTIONS (1)
  - Contraindication to medical treatment [Unknown]
